FAERS Safety Report 10195857 (Version 1)
Quarter: 2014Q2

REPORT INFORMATION
  Report Type: Spontaneous
  Country: US (occurrence: None)
  Receive Date: 20140522
  Receipt Date: 20140522
  Transmission Date: 20141212
  Serious: Yes (Death, Hospitalization)
  Sender: FDA-Public Use
  Company Number: SYM-2014-20970

PATIENT
  Age: 53 Year
  Sex: Male

DRUGS (9)
  1. DILTIAZEM HYDROCHLORIDE [Suspect]
     Indication: PRODUCT USED FOR UNKNOWN INDICATION
     Route: 048
  2. PROPRANOLOL HYDROCHLORIDE [Suspect]
     Indication: PRODUCT USED FOR UNKNOWN INDICATION
     Route: 048
  3. EPINEPHRINE [Suspect]
     Indication: HYPOTENSION
  4. FATS [Suspect]
     Indication: HYPOTENSION
     Dosage: INTRAVENOUS (NOT OTHERWISE SPECIFIED)
     Route: 042
  5. WARFARIN (WARFARIN) [Concomitant]
  6. LORAZEPAM (LORAZEPAM) [Concomitant]
  7. OLMESARTAN [Concomitant]
  8. FLUOXETINE (FLUOXETINE) [Concomitant]
  9. INSULIN (INSULIN) [Concomitant]

REACTIONS (16)
  - Multi-organ failure [None]
  - Respiratory failure [None]
  - Myocardial ischaemia [None]
  - Atrioventricular block complete [None]
  - Overdose [None]
  - Therapeutic response decreased [None]
  - Drug interaction [None]
  - Hypotension [None]
  - Heart rate decreased [None]
  - Oxygen saturation decreased [None]
  - Blood glucose increased [None]
  - Hypoxia [None]
  - Bradycardia [None]
  - Electrocardiogram QRS complex shortened [None]
  - Coronary artery stenosis [None]
  - Cardiac arrest [None]
